FAERS Safety Report 8221999-1 (Version None)
Quarter: 2012Q1

REPORT INFORMATION
  Report Type: 
  Country: None (occurrence: None)
  Receive Date: 20120320
  Receipt Date: 20120309
  Transmission Date: 20120608
  Serious: Yes (Other)
  Sender: FDA-Public Use
  Company Number: US-US-EMD SERONO, INC.-7010596

PATIENT
  Sex: Female

DRUGS (1)
  1. REBIF [Suspect]
     Indication: MULTIPLE SCLEROSIS
     Route: 058
     Dates: start: 20070927, end: 20100101

REACTIONS (5)
  - HERNIA [None]
  - HEPATOMEGALY [None]
  - ENDOMETRIOSIS [None]
  - MUSCLE DISORDER [None]
  - HEPATIC ENZYME INCREASED [None]
